FAERS Safety Report 19592144 (Version 1)
Quarter: 2021Q3

REPORT INFORMATION
  Report Type: Spontaneous
  Country: US (occurrence: US)
  Receive Date: 20210722
  Receipt Date: 20210722
  Transmission Date: 20211014
  Serious: No
  Sender: FDA-Public Use
  Company Number: US-CIPLA LTD.-2021US03650

PATIENT

DRUGS (2)
  1. SALBUTAMOL [Suspect]
     Active Substance: ALBUTEROL
     Indication: CHRONIC OBSTRUCTIVE PULMONARY DISEASE
     Dosage: UNK, BID, 2 PUFFS IN MORNING AND 2 PUFFS IN AFTERNOON
  2. SALBUTAMOL [Suspect]
     Active Substance: ALBUTEROL
     Dosage: UNK, BID, 2 PUFFS IN MORNING AND 2 PUFFS IN AFTERNOON
     Dates: start: 2021, end: 202105

REACTIONS (5)
  - Dyspnoea [Unknown]
  - Product cleaning inadequate [Unknown]
  - Product delivery mechanism issue [Unknown]
  - Device delivery system issue [Unknown]
  - Drug dose omission by device [Unknown]

NARRATIVE: CASE EVENT DATE: 2021
